FAERS Safety Report 19172661 (Version 2)
Quarter: 2021Q2

REPORT INFORMATION
  Report Type: Spontaneous
  Country: US (occurrence: US)
  Receive Date: 20210423
  Receipt Date: 20210521
  Transmission Date: 20210717
  Serious: Yes (Other)
  Sender: FDA-Public Use
  Company Number: US-BAYER-2021-129159

PATIENT
  Age: 25 Year
  Sex: Female

DRUGS (2)
  1. SKYLA [Suspect]
     Active Substance: LEVONORGESTREL
     Indication: CONTRACEPTION
     Dosage: 14 ?G PER DAY, CONTINUOUSLY
     Route: 015
     Dates: start: 20150904, end: 20181031
  2. IBUPROFEN. [Concomitant]
     Active Substance: IBUPROFEN
     Indication: MYALGIA

REACTIONS (6)
  - Feeling abnormal [Recovered/Resolved with Sequelae]
  - Suicidal ideation [Recovered/Resolved with Sequelae]
  - Depression [Recovered/Resolved with Sequelae]
  - Decreased interest [Recovered/Resolved with Sequelae]
  - Emotional disorder [Recovered/Resolved with Sequelae]
  - Irritability [Recovered/Resolved with Sequelae]

NARRATIVE: CASE EVENT DATE: 201510
